FAERS Safety Report 5169236-9 (Version None)
Quarter: 2006Q4

REPORT INFORMATION
  Report Type: 
  Country: None (occurrence: None)
  Receive Date: 20061201
  Receipt Date: 20061120
  Transmission Date: 20070319
  Serious: Yes (Disabling, Other)
  Sender: FDA-Public Use
  Company Number: 2006144009

PATIENT
  Sex: Male

DRUGS (5)
  1. ATORVASTATIN CALCIUM [Suspect]
     Indication: BLOOD CHOLESTEROL INCREASED
     Dosage: 20 MG (20 MG, 1 IN 1 D), ORAL
     Route: 048
     Dates: start: 19980101, end: 20060401
  2. ASPIRIN [Concomitant]
  3. GLYCERYL TRINITRATE (GLYCERYL TRINITRATE) [Concomitant]
  4. ISOSORBIDE MONONITRATE [Concomitant]
  5. RAMIPRIL [Concomitant]

REACTIONS (2)
  - ALVEOLITIS ALLERGIC [None]
  - INTERSTITIAL LUNG DISEASE [None]
